FAERS Safety Report 17005231 (Version 4)
Quarter: 2019Q4

REPORT INFORMATION
  Report Type: Spontaneous
  Country: FR (occurrence: FR)
  Receive Date: 20191107
  Receipt Date: 20191226
  Transmission Date: 20200122
  Serious: Yes (Hospitalization)
  Sender: FDA-Public Use
  Company Number: FR-CELGENEUS-FRA-20191005179

PATIENT
  Age: 68 Year
  Sex: Female
  Weight: 56 kg

DRUGS (29)
  1. AZACITIDINE. [Suspect]
     Active Substance: AZACITIDINE
     Dosage: 75 MILLIGRAM/SQ. METER
     Route: 058
     Dates: start: 20191025
  2. 5% DEXTROSE IN WATER [Concomitant]
     Indication: TUMOUR LYSIS SYNDROME
     Dosage: 5 LITRE
     Route: 041
     Dates: start: 20180108, end: 20180112
  3. VISMED MULTI [Concomitant]
     Indication: BLEPHARITIS
  4. FUSIDIC ACID 2% [Concomitant]
     Indication: SUBCUTANEOUS ABSCESS
     Route: 061
     Dates: start: 20180403
  5. ACUPAN [Concomitant]
     Active Substance: NEFOPAM HYDROCHLORIDE
     Indication: PAIN
     Route: 041
     Dates: start: 20190819
  6. VENETOCLAX. [Concomitant]
     Active Substance: VENETOCLAX
     Indication: ACUTE MYELOID LEUKAEMIA
     Dosage: 100 MILLIGRAM
     Route: 048
     Dates: start: 20180108, end: 20180108
  7. BROMAZEPAM [Concomitant]
     Active Substance: BROMAZEPAM
     Indication: PROPHYLAXIS
     Dosage: 4.5 MILLIGRAM
     Route: 048
     Dates: start: 20180205
  8. ATORVASTATIN [Concomitant]
     Active Substance: ATORVASTATIN
     Indication: DIABETES MELLITUS
     Dosage: 10 MILLIGRAM
     Route: 048
     Dates: start: 2007
  9. KARDEGIC [Concomitant]
     Active Substance: ASPIRIN DL-LYSINE
     Indication: THROMBOSIS PROPHYLAXIS
     Dosage: 75 MILLIGRAM
     Route: 048
     Dates: start: 2014
  10. DOLIPRANE [Concomitant]
     Active Substance: ACETAMINOPHEN
     Indication: PROPHYLAXIS
     Route: 048
     Dates: start: 20180824, end: 20180907
  11. VENETOCLAX. [Concomitant]
     Active Substance: VENETOCLAX
     Dosage: 200 MILLIGRAM
     Route: 048
     Dates: start: 20180109, end: 20180109
  12. VISMED MULTI [Concomitant]
     Indication: KERATITIS
     Dosage: 1 GTT
     Route: 047
     Dates: start: 20180201
  13. PARACETAMOL [Concomitant]
     Active Substance: ACETAMINOPHEN
     Indication: PAIN
     Dosage: 3000 MILLIGRAM
     Route: 048
     Dates: start: 20180819
  14. LEVOTHYROX [Concomitant]
     Active Substance: LEVOTHYROXINE
     Indication: HYPOTHYROIDISM
     Dosage: 100 MICROGRAM
     Route: 048
     Dates: start: 201806
  15. AZACITIDINE. [Suspect]
     Active Substance: AZACITIDINE
     Indication: ACUTE MYELOID LEUKAEMIA
     Dosage: 75 MILLIGRAM/SQ. METER
     Route: 058
     Dates: start: 20180108, end: 20190923
  16. RASBURICASE [Concomitant]
     Active Substance: RASBURICASE
     Indication: TUMOUR LYSIS SYNDROME
     Route: 041
     Dates: start: 20180108, end: 20180111
  17. ZOPHREN [Concomitant]
     Active Substance: ONDANSETRON
     Indication: PROPHYLAXIS OF NAUSEA AND VOMITING
     Dosage: 8 MILLIGRAM
     Route: 048
     Dates: start: 20180108
  18. MYCOSTATINE [Concomitant]
     Active Substance: NYSTATIN
     Indication: PROPHYLAXIS
     Dosage: 100000 U/ML
     Route: 065
     Dates: start: 20180312
  19. NEULASTA [Concomitant]
     Active Substance: PEGFILGRASTIM
     Indication: NEUTROPENIA
     Dosage: DAY 8 EACH CYCLE (0.6 ML)
     Route: 058
     Dates: start: 20180510
  20. FASTURTEC [Concomitant]
     Active Substance: RASBURICASE
     Indication: PROPHYLAXIS
     Route: 041
     Dates: start: 20180108
  21. VENETOCLAX. [Concomitant]
     Active Substance: VENETOCLAX
     Dosage: 400 MILLIGRAM
     Route: 048
     Dates: start: 20191025
  22. NEBIVOLOL. [Concomitant]
     Active Substance: NEBIVOLOL
     Indication: HYPERTENSION
     Dosage: 10 MILLIGRAM
     Route: 048
     Dates: start: 20180108
  23. IMOVANE [Concomitant]
     Active Substance: ZOPICLONE
     Indication: PROPHYLAXIS
     Dosage: 3.75 MILLIGRAM
     Route: 048
     Dates: start: 20180109
  24. BLEPHAGEL [Concomitant]
     Indication: BLEPHARITIS
  25. CATIONORM [Concomitant]
     Active Substance: CETALKONIUM\GLYCERIN\MINERAL OIL\POLOXAMER 188\TROMETHAMINE\TYLOXAPOL
     Indication: BLEPHARITIS
  26. VENETOCLAX. [Concomitant]
     Active Substance: VENETOCLAX
     Dosage: 400 MILLIGRAM
     Route: 048
     Dates: start: 20180110, end: 20191013
  27. CATIONORM [Concomitant]
     Active Substance: CETALKONIUM\GLYCERIN\MINERAL OIL\POLOXAMER 188\TROMETHAMINE\TYLOXAPOL
     Indication: KERATITIS
     Dosage: 1 GTT
     Route: 047
     Dates: start: 20180301
  28. TEMERIT [Concomitant]
     Active Substance: NEBIVOLOL
     Indication: HYPERTENSION
     Dosage: 5 MILLIGRAM
     Route: 048
     Dates: start: 201801
  29. BLEPHAGEL [Concomitant]
     Indication: KERATITIS
     Route: 047
     Dates: start: 20180201

REACTIONS (1)
  - Pneumonitis [Recovered/Resolved]

NARRATIVE: CASE EVENT DATE: 20191005
